FAERS Safety Report 7253020-6 (Version None)
Quarter: 2011Q1

REPORT INFORMATION
  Report Type: 
  Country: None (occurrence: None)
  Receive Date: 20110129
  Receipt Date: 20100121
  Transmission Date: 20110831
  Serious: No
  Sender: FDA-Public Use
  Company Number: US-ABBOTT-10P-163-0622231-00

PATIENT
  Sex: Male

DRUGS (2)
  1. HUMIRA [Suspect]
     Indication: PRODUCT USED FOR UNKNOWN INDICATION
     Route: 058
     Dates: start: 20081101
  2. VITAMIN B-12 [Concomitant]
     Indication: CROHN'S DISEASE

REACTIONS (3)
  - RASH [None]
  - ECZEMA [None]
  - PALPITATIONS [None]
